FAERS Safety Report 11840203 (Version 3)
Quarter: 2016Q3

REPORT INFORMATION
  Report Type: Spontaneous
  Country: US (occurrence: US)
  Receive Date: 20151216
  Receipt Date: 20160713
  Transmission Date: 20161109
  Serious: Yes (Life-Threatening, Other)
  Sender: FDA-Public Use
  Company Number: US-SA-2015SA213263

PATIENT
  Age: 17 Year
  Sex: Male

DRUGS (2)
  1. FABRAZYME [Suspect]
     Active Substance: AGALSIDASE BETA
     Indication: FABRY^S DISEASE
     Dosage: DOSE:  65MG IN 100ML NS
     Route: 041
     Dates: start: 20130903
  2. HEROIN [Suspect]
     Active Substance: DIACETYLMORPHINE
     Route: 065

REACTIONS (5)
  - Pulse absent [Unknown]
  - Overdose [Unknown]
  - Drug dependence [Unknown]
  - Respiratory arrest [Unknown]
  - Generalised tonic-clonic seizure [Recovered/Resolved]

NARRATIVE: CASE EVENT DATE: 20151122
